FAERS Safety Report 5336575-8 (Version None)
Quarter: 2007Q2

REPORT INFORMATION
  Report Type: 
  Country: None (occurrence: None)
  Receive Date: 20070524
  Receipt Date: 20070516
  Transmission Date: 20071010
  Serious: Yes (Other)
  Sender: FDA-Public Use
  Company Number: 083-20785-07050893

PATIENT

DRUGS (3)
  1. THALOMID [Suspect]
     Indication: MULTIPLE MYELOMA
     Dosage: ORAL
     Route: 048
  2. ZOLEDRONIC ACID (ZOLEDRONIC ACID) [Concomitant]
  3. PAMIDRONATE DISODIUM [Concomitant]

REACTIONS (7)
  - ABSCESS [None]
  - FISTULA [None]
  - HYPOAESTHESIA ORAL [None]
  - IMPAIRED HEALING [None]
  - INFLAMMATION [None]
  - MUCOSAL ULCERATION [None]
  - OSTEONECROSIS [None]
